FAERS Safety Report 9153759 (Version 1)
Quarter: 2013Q1

REPORT INFORMATION
  Report Type: Spontaneous
  Country: US (occurrence: None)
  Receive Date: 20130306
  Receipt Date: 20130306
  Transmission Date: 20140127
  Serious: Yes (Hospitalization, Other)
  Sender: FDA-Public Use
  Company Number: None

PATIENT
  Age: 79 Year
  Sex: Female
  Weight: 80.74 kg

DRUGS (2)
  1. CYMBALTA [Suspect]
     Indication: NEURALGIA
     Dosage: 1 A DAY FOR 3 DAYS  1 A DAY FOR 3 DAYS  BY MOUTH
     Route: 048
     Dates: start: 20120902, end: 20120907
  2. LITHIUM [Suspect]
     Indication: AFFECTIVE DISORDER
     Dosage: I FORGET  ?  BY MOUTH
     Route: 048

REACTIONS (3)
  - Suicidal ideation [None]
  - Drug withdrawal syndrome [None]
  - Suicide attempt [None]
